FAERS Safety Report 19694037 (Version 1)
Quarter: 2021Q3

REPORT INFORMATION
  Report Type: Spontaneous
  Country: DE (occurrence: DE)
  Receive Date: 20210813
  Receipt Date: 20210813
  Transmission Date: 20211014
  Serious: Yes (Death, Hospitalization, Other)
  Sender: FDA-Public Use
  Company Number: DE-TEVA-2021-DE-1940761

PATIENT
  Age: 79 Year
  Sex: Male

DRUGS (13)
  1. INSULIN ASPART [Concomitant]
     Active Substance: INSULIN ASPART
     Dosage: 9?5?0?0
  2. CYANOCOBALAMIN (VITAMIN B12) [Concomitant]
     Dosage: 1 DOSAGE FORMS DAILY; 0?1?0?0
  3. DIGITOXIN [Suspect]
     Active Substance: DIGITOXIN
     Dosage: .07 MILLIGRAM DAILY; 1?0?0?0
  4. FEBUXOSTAT. [Concomitant]
     Active Substance: FEBUXOSTAT
     Dosage: 80 MILLIGRAM DAILY;  1?0?0?0
  5. INSULIN DEGLUDEC [Concomitant]
     Active Substance: INSULIN DEGLUDEC
     Dosage: 76 IU (INTERNATIONAL UNIT) DAILY; 0?0?1?0
  6. COLECALCIFEROL (VITAMIN D) [Concomitant]
     Active Substance: CHOLECALCIFEROL
     Dosage: 20000 IU, SCHEME
  7. SPIRONOLACTON [Concomitant]
     Active Substance: SPIRONOLACTONE
     Dosage: 50 MILLIGRAM DAILY; 1?0?0?0
  8. FOLSAURE [Concomitant]
     Active Substance: FOLIC ACID
     Dosage: .4 DOSAGE FORMS DAILY; 5 MG, 0?0.4?0?0
  9. EMPAGLIFLOZIN [Concomitant]
     Active Substance: EMPAGLIFLOZIN
     Dosage: 10 MILLIGRAM DAILY;  1?0?0?0
  10. APIXABAN [Concomitant]
     Active Substance: APIXABAN
     Dosage: 10 MILLIGRAM DAILY; 1?0?1?0
  11. BISOPROLOL [Suspect]
     Active Substance: BISOPROLOL
     Dosage: 10 MILLIGRAM DAILY; 1?0?1?0
  12. LIRAGLUTID [Concomitant]
     Active Substance: LIRAGLUTIDE
     Dosage: 1.8 MILLIGRAM DAILY; 1?0?0?0
  13. ATORVASTATIN [Concomitant]
     Active Substance: ATORVASTATIN
     Dosage: 20 MILLIGRAM DAILY;  0?0?1?0

REACTIONS (8)
  - Wound [Unknown]
  - Muscular weakness [Unknown]
  - Acute respiratory failure [Unknown]
  - Electrocardiogram abnormal [Unknown]
  - Fall [Unknown]
  - Cardiac arrest [Unknown]
  - Dizziness [Unknown]
  - Bradycardia [Unknown]
